FAERS Safety Report 23445033 (Version 1)
Quarter: 2024Q1

REPORT INFORMATION
  Report Type: Spontaneous
  Country: DE (occurrence: None)
  Receive Date: 20240125
  Receipt Date: 20240125
  Transmission Date: 20240409
  Serious: Yes (Other)
  Sender: FDA-Public Use
  Company Number: DE-ROCHE-3498057

PATIENT
  Age: 79 Year
  Sex: Male

DRUGS (3)
  1. VABYSMO [Suspect]
     Active Substance: FARICIMAB\FARICIMAB-SVOA
     Indication: Neovascular age-related macular degeneration
     Dosage: ON 08/SEP/2023, 20/OCT/2023, 15/DEC/2023 HE RECEIVED MOST RECENT OF FARICIMAB.
     Route: 065
     Dates: start: 20230717
  2. AVASTIN [Suspect]
     Active Substance: BEVACIZUMAB
     Indication: Neovascular age-related macular degeneration
     Route: 065
     Dates: start: 2020
  3. TRUSOPT [Suspect]
     Active Substance: DORZOLAMIDE HYDROCHLORIDE
     Indication: Intraocular pressure increased
     Route: 065

REACTIONS (5)
  - Off label use [Unknown]
  - Cataract [Unknown]
  - Glaucoma [Unknown]
  - Intraocular pressure increased [Unknown]
  - Drug hypersensitivity [Unknown]
